FAERS Safety Report 6100836-5 (Version None)
Quarter: 2009Q1

REPORT INFORMATION
  Report Type: 
  Country: None (occurrence: None)
  Receive Date: 20090304
  Receipt Date: 20090218
  Transmission Date: 20090719
  Serious: Yes (Other)
  Sender: FDA-Public Use
  Company Number: IL-RANBAXY-2009RR-21979

PATIENT
  Age: 38 Year
  Sex: Female

DRUGS (6)
  1. AMOXICILLIN [Suspect]
  2. PARACETAMOL [Suspect]
  3. METAMIZOLE [Suspect]
  4. AMOXICILLIN [Concomitant]
  5. PARACETAMOL [Concomitant]
  6. DIPYRONE [Concomitant]

REACTIONS (1)
  - ACUTE FEBRILE NEUTROPHILIC DERMATOSIS [None]
